FAERS Safety Report 4577060-0 (Version None)
Quarter: 2005Q1

REPORT INFORMATION
  Report Type: 
  Country: None (occurrence: None)
  Receive Date: 20050210
  Receipt Date: 20040218
  Transmission Date: 20050727
  Serious: Yes (Life-Threatening, Hospitalization, Disabling, Other)
  Sender: FDA-Public Use
  Company Number: US-MERCK-0402USA01401

PATIENT
  Age: 38 Year
  Sex: Male
  Weight: 73 kg

DRUGS (4)
  1. ADVAIR DISKUS 100/50 [Concomitant]
     Route: 065
     Dates: end: 20040101
  2. ADVAIR DISKUS 100/50 [Concomitant]
     Route: 065
     Dates: start: 20040101
  3. SINGULAIR [Suspect]
     Indication: ASTHMA
     Route: 048
     Dates: start: 20040113, end: 20040206
  4. BIAXIN [Concomitant]
     Route: 065
     Dates: start: 20031101, end: 20040101

REACTIONS (29)
  - ALLERGIC GRANULOMATOUS ANGIITIS [None]
  - ATELECTASIS [None]
  - BIOPSY HEART ABNORMAL [None]
  - BLOOD CREATINE PHOSPHOKINASE INCREASED [None]
  - CARDIAC DISORDER [None]
  - CONFUSIONAL STATE [None]
  - DIPLOPIA [None]
  - ELECTROCARDIOGRAM ST SEGMENT DEPRESSION [None]
  - EMPHYSEMA [None]
  - ENDOCARDIAL FIBROSIS [None]
  - EYE DISORDER [None]
  - FIBROSIS [None]
  - GLOBAL AMNESIA [None]
  - HAEMATURIA [None]
  - HAEMORRHAGE [None]
  - HEADACHE [None]
  - HYPEREOSINOPHILIC SYNDROME [None]
  - HYPOAESTHESIA [None]
  - INFLUENZA LIKE ILLNESS [None]
  - INTERSTITIAL LUNG DISEASE [None]
  - INTRACRANIAL ANEURYSM [None]
  - NEPHROLITHIASIS [None]
  - PLEURAL FIBROSIS [None]
  - RENAL INJURY [None]
  - SENSORY DISTURBANCE [None]
  - TROPONIN INCREASED [None]
  - TUBERCULOSIS [None]
  - VENTRICULAR HYPERTROPHY [None]
  - VITREOUS FLOATERS [None]
